FAERS Safety Report 22187141 (Version 1)
Quarter: 2023Q2

REPORT INFORMATION
  Report Type: Spontaneous
  Country: US (occurrence: US)
  Receive Date: 20230407
  Receipt Date: 20230407
  Transmission Date: 20230721
  Serious: No
  Sender: FDA-Public Use
  Company Number: US-TAKEDA-2023TUS032102

PATIENT
  Sex: Female
  Weight: 54 kg

DRUGS (8)
  1. TRINTELLIX [Suspect]
     Active Substance: VORTIOXETINE HYDROBROMIDE
     Indication: Anxiety
     Dosage: 10 MILLIGRAM, QD
     Route: 065
  2. TRINTELLIX [Suspect]
     Active Substance: VORTIOXETINE HYDROBROMIDE
     Indication: Anger
  3. XANAX [Concomitant]
     Active Substance: ALPRAZOLAM
     Indication: Anxiety
     Dosage: 1 MILLIGRAM, TID
  4. ACYCLOVIR [Concomitant]
     Active Substance: ACYCLOVIR
     Dosage: 1 GRAM, QD
  5. HYDROCODONE [Concomitant]
     Active Substance: HYDROCODONE
     Dosage: UNK
  6. MELOXICAM [Concomitant]
     Active Substance: MELOXICAM
     Indication: Fibromyalgia
     Dosage: 7.5 MILLIGRAM
  7. MELOXICAM [Concomitant]
     Active Substance: MELOXICAM
     Indication: Arthritis
  8. TIZANIDINE HYDROCHLORIDE [Concomitant]
     Active Substance: TIZANIDINE HYDROCHLORIDE
     Indication: Fibromyalgia
     Dosage: 4 MILLIGRAM
     Route: 065

REACTIONS (15)
  - Off label use [Unknown]
  - Fear [Unknown]
  - Daydreaming [Unknown]
  - Crying [Unknown]
  - Feeling abnormal [Unknown]
  - Somnolence [Unknown]
  - Fatigue [Unknown]
  - Abnormal dreams [Unknown]
  - Obsessive-compulsive disorder [Unknown]
  - Disturbance in attention [Unknown]
  - Illness [Unknown]
  - Multiple allergies [Unknown]
  - Agitation [Unknown]
  - Urticaria [Unknown]
  - Stress [Unknown]
